FAERS Safety Report 6635029-6 (Version None)
Quarter: 2010Q1

REPORT INFORMATION
  Report Type: 
  Country: None (occurrence: None)
  Receive Date: 20100311
  Receipt Date: 20100311
  Transmission Date: 20100710
  Serious: Yes (Other)
  Sender: FDA-Public Use
  Company Number: None

PATIENT
  Age: 81 Year
  Sex: Male
  Weight: 84.3 kg

DRUGS (4)
  1. BUPIVACAINE HCL [Suspect]
     Indication: SPINAL ANAESTHESIA
     Dosage: 1.6ML ONE TIME EPIDURAL
     Route: 008
     Dates: start: 20100308, end: 20100308
  2. BUPIVACAINE HYDROCHLORIDE [Concomitant]
  3. DURAMORPH PF [Concomitant]
  4. FENTANYL [Concomitant]

REACTIONS (1)
  - ANAESTHETIC COMPLICATION [None]
